FAERS Safety Report 19272617 (Version 3)
Quarter: 2021Q2

REPORT INFORMATION
  Report Type: Spontaneous
  Country: JP (occurrence: JP)
  Receive Date: 20210519
  Receipt Date: 20210607
  Transmission Date: 20210717
  Serious: Yes (Hospitalization)
  Sender: FDA-Public Use
  Company Number: JP-TAIHO ONCOLOGY  INC-JPTT210175

PATIENT
  Age: 8 Decade
  Sex: Male

DRUGS (2)
  1. LONSURF [Suspect]
     Active Substance: TIPIRACIL HYDROCHLORIDE\TRIFLURIDINE
     Indication: PRODUCT USED FOR UNKNOWN INDICATION
     Dosage: DETAILS NOT REPORTED
     Route: 048
     Dates: start: 20210331
  2. AVASTIN [Concomitant]
     Active Substance: BEVACIZUMAB
     Dosage: DETAILS NOT REPORTED
     Route: 041
     Dates: start: 20210331

REACTIONS (2)
  - Renal impairment [Not Recovered/Not Resolved]
  - Herpes zoster meningitis [Unknown]

NARRATIVE: CASE EVENT DATE: 20210414
